FAERS Safety Report 5116669-2 (Version None)
Quarter: 2006Q3

REPORT INFORMATION
  Report Type: 
  Country: None (occurrence: None)
  Receive Date: 20060928
  Receipt Date: 20060920
  Transmission Date: 20061208
  Serious: Yes (Hospitalization)
  Sender: FDA-Public Use
  Company Number: ES-GLAXOSMITHKLINE-B0439458A

PATIENT
  Age: 94 Year
  Sex: Male

DRUGS (1)
  1. ZINNAT [Suspect]
     Indication: GENERAL SYMPTOM
     Route: 048
     Dates: start: 20050601, end: 20050604

REACTIONS (2)
  - LEUKOCYTOCLASTIC VASCULITIS [None]
  - PURPURA [None]
